FAERS Safety Report 9865205 (Version 2)
Quarter: 2014Q1

REPORT INFORMATION
  Report Type: Spontaneous
  Country: US (occurrence: US)
  Receive Date: 20140203
  Receipt Date: 20140203
  Transmission Date: 20141002
  Serious: No
  Sender: FDA-Public Use
  Company Number: US-ALLERGAN-1304400US

PATIENT
  Sex: Female

DRUGS (3)
  1. RESTASIS [Suspect]
     Indication: DRY EYE
     Dosage: 2 GTT, BID
     Route: 047
     Dates: start: 2012
  2. IRON [Concomitant]
     Indication: ANAEMIA
     Dosage: UNK
  3. EMBREL [Concomitant]
     Indication: RHEUMATOID ARTHRITIS
     Dosage: UNK UNK, BI-WEEKLY
     Route: 058
     Dates: start: 2001

REACTIONS (2)
  - Burning sensation [Not Recovered/Not Resolved]
  - Eye irritation [Not Recovered/Not Resolved]
